FAERS Safety Report 4880356-6 (Version None)
Quarter: 2006Q1

REPORT INFORMATION
  Report Type: 
  Country: None (occurrence: None)
  Receive Date: 20060111
  Receipt Date: 20060111
  Transmission Date: 20060701
  Serious: Yes (Hospitalization)
  Sender: FDA-Public Use
  Company Number: None

PATIENT
  Sex: Male
  Weight: 90.7194 kg

DRUGS (1)
  1. SPECTRACEF [Suspect]
     Indication: BRONCHITIS
     Dosage: 200 MG BID PO
     Route: 048
     Dates: start: 20051220, end: 20051225

REACTIONS (11)
  - CONFUSIONAL STATE [None]
  - CONVULSION [None]
  - COUGH [None]
  - DIZZINESS [None]
  - MENTAL IMPAIRMENT [None]
  - PARANOIA [None]
  - PNEUMONIA [None]
  - PSYCHOMOTOR HYPERACTIVITY [None]
  - PSYCHOTIC DISORDER [None]
  - PYREXIA [None]
  - URINARY TRACT INFECTION [None]
